FAERS Safety Report 6516341-8 (Version None)
Quarter: 2009Q4

REPORT INFORMATION
  Report Type: 
  Country: None (occurrence: None)
  Receive Date: 20091223
  Receipt Date: 20091221
  Transmission Date: 20100525
  Serious: Yes (Other)
  Sender: FDA-Public Use
  Company Number: A0809334A

PATIENT
  Age: 81 Year
  Sex: Female
  Weight: 61.8 kg

DRUGS (10)
  1. COREG CR [Suspect]
     Indication: HYPERTENSION
     Dosage: 20MG PER DAY
     Route: 048
     Dates: start: 20090801, end: 20090901
  2. CRESTOR [Concomitant]
     Dosage: 20MG PER DAY
  3. LASIX [Concomitant]
  4. PLAVIX [Concomitant]
     Dosage: 75MG PER DAY
  5. AMLODIPINE [Concomitant]
     Dosage: 5MG PER DAY
  6. ASPIRIN [Concomitant]
     Dosage: 162MG PER DAY
  7. TORSEMIDE [Concomitant]
     Dosage: 20MG PER DAY
  8. FOSAMAX [Concomitant]
     Dosage: 60MG WEEKLY
  9. COMBIGAN [Concomitant]
     Dosage: 1DROP PER DAY
  10. CELEBREX [Concomitant]
     Dosage: 200MG AS REQUIRED

REACTIONS (8)
  - ARTHRALGIA [None]
  - BLOOD PRESSURE DECREASED [None]
  - DRY EYE [None]
  - FATIGUE [None]
  - HYPOTENSION [None]
  - LOSS OF CONSCIOUSNESS [None]
  - MALAISE [None]
  - SYNCOPE [None]
